FAERS Safety Report 21975156 (Version 1)
Quarter: 2023Q1

REPORT INFORMATION
  Report Type: Report from Study
  Country: CA (occurrence: CA)
  Receive Date: 20230209
  Receipt Date: 20230209
  Transmission Date: 20230417
  Serious: Yes (Hospitalization)
  Sender: FDA-Public Use
  Company Number: CA-ABBVIE-4299397

PATIENT
  Age: 38 Year
  Sex: Male

DRUGS (5)
  1. SKYRIZI [Suspect]
     Active Substance: RISANKIZUMAB-RZAA
     Indication: Psoriatic arthropathy
     Route: 058
     Dates: start: 20201005, end: 20220406
  2. SKYRIZI [Suspect]
     Active Substance: RISANKIZUMAB-RZAA
     Route: 058
     Dates: start: 20220207
  3. PREDNISONE [Concomitant]
     Active Substance: PREDNISONE
     Indication: Crohn^s disease
     Route: 048
     Dates: start: 20191201
  4. ROUBAC [Concomitant]
     Indication: Pilonidal disease
     Route: 048
     Dates: start: 20200923
  5. CYCLOBENZAPRINE [Concomitant]
     Active Substance: CYCLOBENZAPRINE
     Indication: Myalgia
     Dosage: TIME INTERVAL: 0.33333333 DAYS
     Route: 048
     Dates: start: 20200201

REACTIONS (1)
  - Pneumothorax [Recovering/Resolving]

NARRATIVE: CASE EVENT DATE: 20221218
